FAERS Safety Report 7610882-8 (Version None)
Quarter: 2011Q3

REPORT INFORMATION
  Report Type: 
  Country: None (occurrence: None)
  Receive Date: 20110715
  Receipt Date: 20110706
  Transmission Date: 20111222
  Serious: Yes (Hospitalization)
  Sender: FDA-Public Use
  Company Number: FR-BRISTOL-MYERS SQUIBB COMPANY-15885494

PATIENT
  Age: 52 Year
  Sex: Female
  Weight: 70 kg

DRUGS (4)
  1. OSSOPAN [Concomitant]
     Dosage: 1 DF: 8 TABLETS A DAY
     Route: 048
  2. ORENCIA [Suspect]
     Route: 042
     Dates: start: 20100512, end: 20110519
  3. PREDNISONE [Concomitant]
     Route: 048
  4. AZATHIOPRINE SODIUM [Suspect]
     Route: 048
     Dates: start: 20090201, end: 20110501

REACTIONS (4)
  - WEIGHT INCREASED [None]
  - HEADACHE [None]
  - SCOTOMA [None]
  - VISUAL IMPAIRMENT [None]
